FAERS Safety Report 8614367 (Version 2)
Quarter: 2013Q3

REPORT INFORMATION
  Report Type: Spontaneous
  Country: US (occurrence: US)
  Receive Date: 20120614
  Receipt Date: 20130704
  Transmission Date: 20140515
  Serious: Yes (Hospitalization)
  Sender: FDA-Public Use
  Company Number: US-ASTRAZENECA-2012SE35507

PATIENT
  Age: 45 Year
  Sex: Female

DRUGS (6)
  1. NEXIUM [Suspect]
     Indication: DYSPEPSIA
     Dosage: 1 TO 2 A DAY
     Route: 048
  2. PRILOSEC [Suspect]
     Route: 048
     Dates: start: 19990704
  3. PREVACID [Concomitant]
  4. ZANTAC [Concomitant]
  5. PEPCID [Concomitant]
  6. PROPULSID [Concomitant]
     Dosage: TAKE 1 TABLET BY MOUTH BEFORE MEALS AND AT BEDTIME
     Route: 048

REACTIONS (6)
  - Gallbladder disorder [Unknown]
  - Osteoporosis [Unknown]
  - Bone density decreased [Unknown]
  - Multiple fractures [Unknown]
  - Vitamin D deficiency [Unknown]
  - Arthralgia [Unknown]
